FAERS Safety Report 9610852 (Version 2)
Quarter: 2014Q1

REPORT INFORMATION
  Report Type: Spontaneous
  Country: AU (occurrence: AU)
  Receive Date: 20131009
  Receipt Date: 20140321
  Transmission Date: 20141002
  Serious: Yes (Other)
  Sender: FDA-Public Use
  Company Number: PHHY2013AU109922

PATIENT
  Age: 38 Year
  Sex: Male
  Weight: 69 kg

DRUGS (11)
  1. CERTICAN [Suspect]
     Dosage: 0.75 MG, BID
     Route: 048
     Dates: start: 201301
  2. METOPROLOL [Concomitant]
     Dosage: 25 MG, UNK
     Route: 048
  3. NEXIAM//ESOMEPRAZOLE SODIUM [Concomitant]
  4. PREDNISOLONE [Concomitant]
     Dosage: 5 MG, UNK
     Route: 048
  5. ACICLOVIR [Concomitant]
     Dosage: 400 MG, BID
     Route: 048
  6. LERCANIDIPINE [Concomitant]
     Dosage: 10 MG, UNK
     Route: 048
  7. RANITIDINE [Concomitant]
     Dosage: 150 MG, BID
     Route: 048
  8. ERYTHROPOIETIN [Concomitant]
     Dosage: 10000 UNITS, QW
     Route: 058
  9. METHOTREXATE [Concomitant]
     Indication: CENTRAL NERVOUS SYSTEM LYMPHOMA
     Dosage: UNK UKN, UNK
  10. RITUXIMAB [Concomitant]
     Indication: CENTRAL NERVOUS SYSTEM LYMPHOMA
     Dosage: UNK UKN, UNK
  11. BACTRIM [Concomitant]
     Dosage: UNK UKN, UNK

REACTIONS (8)
  - Non-Hodgkin^s lymphoma [Unknown]
  - Dry skin [Unknown]
  - Pruritus [Unknown]
  - Vision blurred [Not Recovered/Not Resolved]
  - Hypoaesthesia [Recovering/Resolving]
  - Abdominal pain [Not Recovered/Not Resolved]
  - Limb discomfort [Unknown]
  - Eye pain [Unknown]
